FAERS Safety Report 24096618 (Version 1)
Quarter: 2024Q3

REPORT INFORMATION
  Report Type: Report from Study
  Country: CO (occurrence: CO)
  Receive Date: 20240716
  Receipt Date: 20240716
  Transmission Date: 20241016
  Serious: Yes (Other)
  Sender: NOVARTIS
  Company Number: CO-002147023-NVSC2024CO083906

PATIENT
  Sex: Female
  Weight: 68 kg

DRUGS (5)
  1. KISQALI [Suspect]
     Active Substance: RIBOCICLIB
     Indication: Hormone receptor positive HER2 negative breast cancer
     Dosage: 600 MG, QD
     Route: 048
     Dates: start: 20240310
  2. KISQALI [Suspect]
     Active Substance: RIBOCICLIB
     Indication: Breast cancer metastatic
     Dosage: 600 MG, QD
     Route: 048
  3. FEMARA [Suspect]
     Active Substance: LETROZOLE
     Indication: Product used for unknown indication
     Dosage: UNK
     Route: 065
  4. FULVESTRANT [Concomitant]
     Active Substance: FULVESTRANT
     Indication: Breast cancer
     Dosage: UNK (STARTED 6 MONTHS AGO), EVERY 3 MONTHS
     Route: 030
  5. PREGABALIN [Concomitant]
     Active Substance: PREGABALIN
     Indication: Pain
     Dosage: UNK, QD (STARTED 2 YEARS AGO)
     Route: 048

REACTIONS (9)
  - Metastases to spine [Unknown]
  - Inflammation [Not Recovered/Not Resolved]
  - Breast mass [Not Recovered/Not Resolved]
  - Musculoskeletal discomfort [Unknown]
  - Mobility decreased [Not Recovered/Not Resolved]
  - Decreased immune responsiveness [Unknown]
  - Feeling of despair [Unknown]
  - Musculoskeletal stiffness [Unknown]
  - Gait disturbance [Unknown]
